FAERS Safety Report 12858214 (Version 2)
Quarter: 2017Q2

REPORT INFORMATION
  Report Type: Spontaneous
  Country: AT (occurrence: AT)
  Receive Date: 20161018
  Receipt Date: 20170418
  Transmission Date: 20170830
  Serious: Yes (Life-Threatening, Hospitalization, Other)
  Sender: FDA-Public Use
  Company Number: AT-ELI_LILLY_AND_COMPANY-AT201610004177

PATIENT
  Age: 33 Year
  Sex: Female

DRUGS (9)
  1. LEPONEX [Interacting]
     Active Substance: CLOZAPINE
     Dosage: 150 MG, QD
     Route: 048
     Dates: start: 20160323, end: 20160406
  2. LEPONEX [Interacting]
     Active Substance: CLOZAPINE
     Dosage: 75 MG, QD
     Route: 048
     Dates: start: 20160418, end: 20160427
  3. LEPONEX [Interacting]
     Active Substance: CLOZAPINE
     Dosage: 125 MG, QD
     Route: 048
     Dates: start: 20160407, end: 20160417
  4. CYMBALTA [Suspect]
     Active Substance: DULOXETINE HYDROCHLORIDE
     Indication: PRODUCT USED FOR UNKNOWN INDICATION
     Dosage: 30 MG, QD
     Route: 048
     Dates: start: 2014, end: 20160314
  5. CYMBALTA [Interacting]
     Active Substance: DULOXETINE HYDROCHLORIDE
     Dosage: 60 MG, QD
     Route: 048
     Dates: start: 20160315, end: 20160327
  6. LEPONEX [Interacting]
     Active Substance: CLOZAPINE
     Dosage: 25 MG, QD
     Route: 048
     Dates: start: 20160503
  7. LEPONEX [Interacting]
     Active Substance: CLOZAPINE
     Indication: PRODUCT USED FOR UNKNOWN INDICATION
     Dosage: 125 MG, QD
     Route: 048
     Dates: start: 2013, end: 20160322
  8. LEPONEX [Interacting]
     Active Substance: CLOZAPINE
     Dosage: 62.5 MG, QD
     Route: 048
     Dates: start: 20160428, end: 20160502
  9. CYMBALTA [Interacting]
     Active Substance: DULOXETINE HYDROCHLORIDE
     Dosage: 90 MG, QD
     Route: 048
     Dates: start: 20160328

REACTIONS (4)
  - Pulmonary embolism [Recovering/Resolving]
  - Drug interaction [Unknown]
  - Deep vein thrombosis [Recovering/Resolving]
  - Pneumonia [Recovering/Resolving]

NARRATIVE: CASE EVENT DATE: 20160403
